FAERS Safety Report 10264307 (Version 1)
Quarter: 2014Q2

REPORT INFORMATION
  Report Type: Spontaneous
  Country: US (occurrence: None)
  Receive Date: 20140624
  Receipt Date: 20140624
  Transmission Date: 20141212
  Serious: Yes (Disabling)
  Sender: FDA-Public Use
  Company Number: None

PATIENT
  Age: 83 Year
  Sex: Female
  Weight: 50.8 kg

DRUGS (1)
  1. BIOTENE DRY MOUTH ORAL RINSE [Suspect]
     Indication: DRY MOUTH
     Dates: start: 20140602, end: 20140613

REACTIONS (4)
  - Sensation of foreign body [None]
  - Odynophagia [None]
  - Oral candidiasis [None]
  - Ageusia [None]
